FAERS Safety Report 23256907 (Version 2)
Quarter: 2023Q4

REPORT INFORMATION
  Report Type: Spontaneous
  Country: CN (occurrence: CN)
  Receive Date: 20231204
  Receipt Date: 20231211
  Transmission Date: 20240110
  Serious: Yes (Hospitalization, Other)
  Sender: FDA-Public Use
  Company Number: CN-BRISTOL-MYERS SQUIBB COMPANY-2023-170512

PATIENT
  Age: 18 Year
  Sex: Female

DRUGS (2)
  1. TRIAMCINOLONE ACETONIDE [Suspect]
     Active Substance: TRIAMCINOLONE ACETONIDE
     Indication: Keloid scar
     Dates: start: 20220614
  2. LIDOCAINE [Concomitant]
     Active Substance: LIDOCAINE
     Indication: Keloid scar
     Dosage: 0.2 ML OF A MIXTURE OF LIDOCAINE (5 ML ? 0. 1 G) AND TRIAMCINOLONE ACETONIDE (1 ML ? 40 MG) WAS INJE
     Dates: start: 20220614

REACTIONS (3)
  - Deafness [Not Recovered/Not Resolved]
  - Off label use [Unknown]
  - Embolism arterial [Not Recovered/Not Resolved]
